FAERS Safety Report 4668043-0 (Version None)
Quarter: 2005Q2

REPORT INFORMATION
  Report Type: 
  Country: None (occurrence: None)
  Receive Date: 20050520
  Receipt Date: 20050511
  Transmission Date: 20051028
  Serious: Yes (Death, Other)
  Sender: FDA-Public Use
  Company Number: US-MERCK-0505USA01794

PATIENT
  Sex: Female

DRUGS (1)
  1. VIOXX [Suspect]
     Route: 048
     Dates: start: 20030101, end: 20030519

REACTIONS (5)
  - CARDIAC DISORDER [None]
  - CARDIOVASCULAR DISORDER [None]
  - DEATH [None]
  - MYOCARDIAL INFARCTION [None]
  - ORGAN FAILURE [None]
